FAERS Safety Report 5156861-4 (Version None)
Quarter: 2006Q4

REPORT INFORMATION
  Report Type: 
  Country: None (occurrence: None)
  Receive Date: 20061115
  Receipt Date: 20061002
  Transmission Date: 20070319
  Serious: Yes (Other)
  Sender: FDA-Public Use
  Company Number: 2006135687

PATIENT
  Age: 84 Year
  Sex: Male

DRUGS (3)
  1. CABERGOLINE [Suspect]
     Indication: PARKINSON'S DISEASE
     Dosage: 0.75 MG (1 D), ORAL
     Route: 048
     Dates: start: 20030814, end: 20060921
  2. MADOPAR (BENSERAZIDE HYDROCHLORIDE, LEVODOPA) [Concomitant]
  3. ARICEPT [Concomitant]

REACTIONS (1)
  - INTERSTITIAL LUNG DISEASE [None]
